FAERS Safety Report 14302757 (Version 1)
Quarter: 2017Q4

REPORT INFORMATION
  Report Type: Report from Study
  Country: US (occurrence: US)
  Receive Date: 20171219
  Receipt Date: 20171219
  Transmission Date: 20180321
  Serious: Yes (Hospitalization, Other)
  Sender: FDA-Public Use
  Company Number: US-BAYER-2017-217129

PATIENT
  Age: 60 Year
  Sex: Male

DRUGS (3)
  1. STIVARGA [Suspect]
     Active Substance: REGORAFENIB
     Indication: PRODUCT USED FOR UNKNOWN INDICATION
     Dosage: DOSE LOWERED (UNKNOWN DOSE)
     Route: 048
     Dates: start: 2017, end: 2017
  2. STIVARGA [Suspect]
     Active Substance: REGORAFENIB
     Indication: PRODUCT USED FOR UNKNOWN INDICATION
     Dosage: DAILY DOSE 120 MG
     Route: 048
     Dates: start: 2017, end: 2017
  3. STIVARGA [Suspect]
     Active Substance: REGORAFENIB
     Indication: PRODUCT USED FOR UNKNOWN INDICATION
     Dosage: DAILY DOSE 120 MG
     Route: 048
     Dates: start: 20171017, end: 2017

REACTIONS (4)
  - Hospitalisation [None]
  - Hypertension [None]
  - Adverse drug reaction [None]
  - Off label use [None]
